FAERS Safety Report 4649596-5 (Version None)
Quarter: 2005Q2

REPORT INFORMATION
  Report Type: 
  Country: None (occurrence: None)
  Receive Date: 20050427
  Receipt Date: 20050407
  Transmission Date: 20051028
  Serious: Yes (Hospitalization)
  Sender: FDA-Public Use
  Company Number: USA050495170

PATIENT
  Age: 52 Year
  Sex: Female

DRUGS (5)
  1. FORTEO [Suspect]
     Indication: OSTEOPOROSIS
     Dates: start: 20050317
  2. THERAFLU [Concomitant]
  3. TYLENOL COLD [Concomitant]
  4. VITAMINS [Concomitant]
  5. CALCIUM GLUCONATE [Concomitant]

REACTIONS (6)
  - ALANINE AMINOTRANSFERASE INCREASED [None]
  - ASPARTATE AMINOTRANSFERASE INCREASED [None]
  - BLOOD ALKALINE PHOSPHATASE INCREASED [None]
  - BRONCHITIS [None]
  - NASOPHARYNGITIS [None]
  - PHARMACEUTICAL PRODUCT COMPLAINT [None]
